FAERS Safety Report 7892853-X (Version None)
Quarter: 2011Q4

REPORT INFORMATION
  Report Type: 
  Country: None (occurrence: None)
  Receive Date: 20111104
  Receipt Date: 20111027
  Transmission Date: 20120403
  Serious: Yes (Disabling, Other)
  Sender: FDA-Public Use
  Company Number: GB-BRISTOL-MYERS SQUIBB COMPANY-16199937

PATIENT
  Age: 32 Year
  Sex: Female

DRUGS (14)
  1. PRAVASTATIN SODIUM [Concomitant]
  2. DIHYDROCODEINE BITARTRATE INJ [Concomitant]
  3. ACETAMINOPHEN [Concomitant]
  4. TRIAMCINOLONE ACETONIDE [Suspect]
     Indication: ARTHRITIS
     Dosage: TOTAL DOSE 160MG: ROUTE OF ADMIN: IART
  5. ATAZANAVIR [Concomitant]
  6. OMEPRAZOLE [Concomitant]
  7. RITONAVIR [Interacting]
     Indication: HIV INFECTION
     Route: 048
  8. VITAMIN B COMPLEX CAP [Concomitant]
  9. TRAZODONE HCL [Concomitant]
  10. TRUVADA [Concomitant]
  11. ANTABUSE [Concomitant]
  12. THIAMINE HCL [Concomitant]
  13. ASPIRIN [Concomitant]
  14. NAPROXEN SODIUM [Concomitant]

REACTIONS (5)
  - DRUG INTERACTION [None]
  - ADRENAL SUPPRESSION [None]
  - RESPIRATORY TRACT INFECTION [None]
  - CD4 LYMPHOCYTES DECREASED [None]
  - OSTEONECROSIS [None]
